FAERS Safety Report 5106614-8 (Version None)
Quarter: 2006Q3

REPORT INFORMATION
  Report Type: 
  Country: None (occurrence: None)
  Receive Date: 20060918
  Receipt Date: 20060904
  Transmission Date: 20061208
  Serious: Yes (Hospitalization, Other)
  Sender: FDA-Public Use
  Company Number: PHBS2006BR13526

PATIENT
  Age: 56 Year
  Sex: Female
  Weight: 67 kg

DRUGS (1)
  1. ESTRADOT [Suspect]
     Indication: HORMONE REPLACEMENT THERAPY
     Dosage: 50 UG/DAY
     Route: 062

REACTIONS (12)
  - ARTHRALGIA [None]
  - DEPRESSION [None]
  - DRUG INEFFECTIVE [None]
  - FEELING ABNORMAL [None]
  - IRRITABILITY [None]
  - LABOUR COMPLICATION [None]
  - MAJOR DEPRESSION [None]
  - OSTEOPOROSIS [None]
  - OVARIAN OPERATION [None]
  - RHEUMATOID ARTHRITIS [None]
  - TRANSFUSION [None]
  - TUBERCULOSIS [None]
